FAERS Safety Report 5908571-0 (Version None)
Quarter: 2008Q4

REPORT INFORMATION
  Report Type: 
  Country: None (occurrence: None)
  Receive Date: 20081001
  Receipt Date: 20080917
  Transmission Date: 20090506
  Serious: Yes (Hospitalization)
  Sender: FDA-Public Use
  Company Number: B0537917A

PATIENT
  Age: 3 Year
  Sex: Female

DRUGS (5)
  1. LAMOTRIGINE [Suspect]
     Indication: CONVULSION
     Dosage: 1.7 MG/KG/PER DAY
  2. VALPROIC ACID [Suspect]
     Indication: CONVULSION
     Dosage: 48 MG/KG/ PER DAY
  3. VALPROIC ACID [Suspect]
     Indication: CONVULSION
     Dosage: 48 MG/KG/PER DAY
  4. PHENYTOIN [Suspect]
     Indication: CONVULSION
     Dosage: 9.6 MG/KG/PER DAY
  5. ACETAMINOPHEN [Concomitant]

REACTIONS (18)
  - ANISOCYTOSIS [None]
  - BONE MARROW TOXICITY [None]
  - ELECTROENCEPHALOGRAM ABNORMAL [None]
  - GENERAL PHYSICAL HEALTH DETERIORATION [None]
  - HEPATOTOXICITY [None]
  - HYPOTONIA [None]
  - INTERNATIONAL NORMALISED RATIO DECREASED [None]
  - IRRITABILITY [None]
  - LOBAR PNEUMONIA [None]
  - MULTI-ORGAN DISORDER [None]
  - NEUTROPHIL COUNT DECREASED [None]
  - PARAINFLUENZAE VIRUS INFECTION [None]
  - PETECHIAE [None]
  - PLATELET COUNT DECREASED [None]
  - RED BLOOD CELL COUNT DECREASED [None]
  - RETICULOCYTE COUNT DECREASED [None]
  - STATUS EPILEPTICUS [None]
  - WHITE BLOOD CELL COUNT DECREASED [None]
